FAERS Safety Report 10186381 (Version 1)
Quarter: 2014Q2

REPORT INFORMATION
  Report Type: Spontaneous
  Country: US (occurrence: US)
  Receive Date: 20140521
  Receipt Date: 20140521
  Transmission Date: 20141212
  Serious: No
  Sender: FDA-Public Use
  Company Number: US-ASTRAZENECA-2014SE06067

PATIENT
  Age: 57 Year
  Sex: Female
  Weight: 66.2 kg

DRUGS (5)
  1. PULMICORT FLEXHALER [Suspect]
     Indication: ASTHMA
     Dosage: 1 PUFF, TWO TIMES A DAY
     Route: 055
     Dates: start: 201306, end: 2013
  2. PRO AIR [Concomitant]
     Indication: ASTHMA
     Dosage: UNKNOWN PRN
     Route: 055
  3. SINGULAIR [Concomitant]
     Indication: SEASONAL ALLERGY
     Dosage: DAILY
     Route: 055
     Dates: start: 2000
  4. SINGULAIR [Concomitant]
     Indication: SEASONAL ALLERGY
     Dosage: DAILY
     Route: 055
     Dates: start: 2000
  5. SINGULAIR [Concomitant]
     Indication: HOUSE DUST ALLERGY
     Dosage: DAILY
     Route: 055
     Dates: start: 2000

REACTIONS (5)
  - Malaise [Not Recovered/Not Resolved]
  - Dyspnoea [Not Recovered/Not Resolved]
  - Sleep disorder due to general medical condition, insomnia type [Not Recovered/Not Resolved]
  - Off label use [None]
  - Intentional product misuse [None]
